FAERS Safety Report 9883712 (Version 6)
Quarter: 2014Q2

REPORT INFORMATION
  Report Type: Spontaneous
  Country: US (occurrence: US)
  Receive Date: 20140210
  Receipt Date: 20140415
  Transmission Date: 20141212
  Serious: Yes (Other)
  Sender: FDA-Public Use
  Company Number: US-009507513-1402USA003227

PATIENT
  Sex: Female

DRUGS (2)
  1. NEXPLANON [Suspect]
     Indication: CONTRACEPTION
     Dosage: UNK
     Route: 059
     Dates: start: 201303
  2. NEXPLANON [Suspect]
     Dosage: A NEW NEXPLANON ROD WAS INSERTED
     Route: 059
     Dates: start: 2014

REACTIONS (4)
  - Abortion induced [Unknown]
  - Unintended pregnancy [Recovered/Resolved]
  - Medical device complication [Not Recovered/Not Resolved]
  - Drug dose omission [Unknown]
